FAERS Safety Report 20035830 (Version 1)
Quarter: 2021Q4

REPORT INFORMATION
  Report Type: Other
  Country: US (occurrence: None)
  Receive Date: 20211105
  Receipt Date: 20211105
  Transmission Date: 20220304
  Serious: Yes (Other)
  Sender: FDA-Public Use
  Company Number: US-ROCHE-2945294

PATIENT
  Sex: Female

DRUGS (1)
  1. OCREVUS [Suspect]
     Active Substance: OCRELIZUMAB
     Indication: Primary progressive multiple sclerosis
     Dosage: DATE OF TREATMENT: 26/MAR/2018, 09/APR/2018, 09/OCT/2018, 09/OCT/2019, 27/MAY/2020, 09/APR/2021
     Route: 042

REACTIONS (1)
  - Herpes zoster [Unknown]
